FAERS Safety Report 8236584-5 (Version None)
Quarter: 2012Q1

REPORT INFORMATION
  Report Type: 
  Country: None (occurrence: None)
  Receive Date: 20120327
  Receipt Date: 20120305
  Transmission Date: 20120608
  Serious: Yes (Other)
  Sender: FDA-Public Use
  Company Number: BR-ELI_LILLY_AND_COMPANY-BR201112004289

PATIENT
  Sex: Female

DRUGS (8)
  1. RANITIDINE [Concomitant]
     Dosage: UNK, UNKNOWN
     Route: 048
  2. SIMVASTATIN [Concomitant]
     Dosage: UNK, UNKNOWN
     Route: 048
  3. LOVAZA [Concomitant]
     Dosage: UNK, UNKNOWN
     Route: 048
  4. CALCIUM CARBONATE [Concomitant]
     Dosage: UNK, UNKNOWN
     Route: 065
  5. ATENOLOL [Concomitant]
     Dosage: UNK, UNKNOWN
     Route: 048
  6. EFFIENT [Suspect]
     Indication: ANTIPLATELET THERAPY
     Dosage: 10 MG, QD
     Route: 048
     Dates: start: 20111117
  7. DISGREN [Concomitant]
     Dosage: UNK, UNKNOWN
     Route: 048
  8. CAPTOPRIL [Concomitant]
     Dosage: UNK, UNKNOWN
     Route: 048

REACTIONS (5)
  - INFLUENZA [None]
  - PAIN [None]
  - COUGH [None]
  - HEADACHE [None]
  - ANGINA PECTORIS [None]
